FAERS Safety Report 14625168 (Version 2)
Quarter: 2018Q2

REPORT INFORMATION
  Report Type: Report from Study
  Country: TW (occurrence: TW)
  Receive Date: 20180312
  Receipt Date: 20180402
  Transmission Date: 20180711
  Serious: Yes (Other)
  Sender: FDA-Public Use
  Company Number: TW-ASTELLAS-2018US011831

PATIENT

DRUGS (9)
  1. CHLORPHENIRAMIN [Concomitant]
     Active Substance: CHLORPHENIRAMINE MALEATE
     Indication: PROPHYLAXIS
     Dosage: 1 DF, ONCE DAILY AS NEEDED
     Route: 042
     Dates: start: 20180105, end: 20180113
  2. POLVIDINE [Concomitant]
     Indication: PROPHYLAXIS
     Dosage: 15 ML, TWICE PER DAY AS NEEDED
     Route: 061
     Dates: start: 20180106, end: 20180113
  3. VANCOMYCIN [Concomitant]
     Active Substance: VANCOMYCIN
     Indication: PROPHYLAXIS
     Route: 042
     Dates: start: 20180105, end: 20180108
  4. PARMASON [Concomitant]
     Indication: PROPHYLAXIS
     Dosage: 200 ML, TWICE DAILY (GARGLE)
     Route: 050
     Dates: start: 20180105, end: 20180113
  5. MEROPENEM. [Concomitant]
     Active Substance: MEROPENEM
     Indication: PROPHYLAXIS
     Route: 042
     Dates: start: 20180105, end: 20180108
  6. VALTREX [Concomitant]
     Active Substance: VALACYCLOVIR HYDROCHLORIDE
     Indication: PROPHYLAXIS
     Dosage: 1000 MG, 3 TIMES PER DAY THRICE DAILY
     Route: 048
     Dates: start: 20180105, end: 20180109
  7. MICAFUNGIN [Suspect]
     Active Substance: MICAFUNGIN
     Indication: PROPHYLAXIS
     Dosage: UNK, UNKNOWN FREQ.
     Route: 065
     Dates: start: 20180105, end: 20180113
  8. CEFEPIME [Concomitant]
     Active Substance: CEFEPIME HYDROCHLORIDE
     Indication: PROPHYLAXIS
     Route: 042
     Dates: start: 20180108, end: 20180113
  9. ACETYLCYSTEINE. [Concomitant]
     Active Substance: ACETYLCYSTEINE
     Indication: PRODUCTIVE COUGH
     Dosage: 1 DF, ONCE DAILY (EVERY EVENING)
     Route: 048
     Dates: start: 20180105, end: 20180113

REACTIONS (2)
  - Tuberculosis [Recovering/Resolving]
  - Chromaturia [Recovering/Resolving]

NARRATIVE: CASE EVENT DATE: 20180109
